FAERS Safety Report 5499749-1 (Version None)
Quarter: 2007Q4

REPORT INFORMATION
  Report Type: 
  Country: None (occurrence: None)
  Receive Date: 20071026
  Receipt Date: 20071023
  Transmission Date: 20080405
  Serious: Yes (Disabling)
  Sender: FDA-Public Use
  Company Number: GB-BOEHRINGER INGELHEIM PHARMACEUTICALS, INC.-2007-UK-03345UK

PATIENT
  Age: 78 Year
  Sex: Male

DRUGS (5)
  1. DIPYRIDAMOLE [Suspect]
     Indication: CEREBROVASCULAR ACCIDENT
     Route: 048
     Dates: start: 20020301, end: 20020801
  2. ASPIRIN [Concomitant]
     Indication: TRANSIENT ISCHAEMIC ATTACK
     Route: 048
  3. ATENOLOL [Concomitant]
     Indication: HYPERTENSION
     Route: 048
  4. ATORVASTATIN [Concomitant]
     Indication: HYPERCHOLESTEROLAEMIA
     Route: 048
  5. SENNA [Concomitant]
     Route: 048

REACTIONS (2)
  - ALLODYNIA [None]
  - PARAESTHESIA [None]
